FAERS Safety Report 10241895 (Version 1)
Quarter: 2014Q2

REPORT INFORMATION
  Report Type: Spontaneous
  Country: US (occurrence: US)
  Receive Date: 20140617
  Receipt Date: 20140617
  Transmission Date: 20141212
  Serious: No
  Sender: FDA-Public Use
  Company Number: US-BAYER-2014-090663

PATIENT
  Age: 82 Year
  Sex: Male
  Weight: 56.69 kg

DRUGS (6)
  1. ALEVE CAPLET [Suspect]
     Dosage: 2 DF, BID
     Route: 048
     Dates: start: 201310
  2. ALEVE CAPLET [Suspect]
     Dosage: 1 DF, BID
     Route: 048
     Dates: start: 201310
  3. VITAMIN D [Concomitant]
  4. ECOTRIN [Concomitant]
  5. TIMOLOL [Concomitant]
  6. SYNTHROID [Concomitant]

REACTIONS (2)
  - Incorrect drug administration duration [None]
  - Extra dose administered [None]
